FAERS Safety Report 20279126 (Version 1)
Quarter: 2022Q1

REPORT INFORMATION
  Report Type: Spontaneous
  Country: US (occurrence: None)
  Receive Date: 20220103
  Receipt Date: 20220103
  Transmission Date: 20220424
  Serious: No
  Sender: FDA-Public Use
  Company Number: 2021A908382

PATIENT
  Age: 82 Year
  Sex: Female
  Weight: 52.2 kg

DRUGS (1)
  1. BEVESPI AEROSPHERE [Suspect]
     Active Substance: FORMOTEROL FUMARATE\GLYCOPYRROLATE
     Indication: Chronic obstructive pulmonary disease
     Dosage: 9/4.8MCG 2 PUFFS TWO TIMES A DAY
     Route: 055
     Dates: start: 2015

REACTIONS (6)
  - Hypoacusis [Unknown]
  - Gait disturbance [Not Recovered/Not Resolved]
  - Wrong technique in device usage process [Unknown]
  - Device malfunction [Unknown]
  - Device use issue [Unknown]
  - Drug dose omission by device [Not Recovered/Not Resolved]

NARRATIVE: CASE EVENT DATE: 20150101
